FAERS Safety Report 22048086 (Version 1)
Quarter: 2023Q1

REPORT INFORMATION
  Report Type: Spontaneous
  Country: US (occurrence: US)
  Receive Date: 20230301
  Receipt Date: 20230301
  Transmission Date: 20230418
  Serious: No
  Sender: FDA-Public Use
  Company Number: US-TEVA-2023-US-2858975

PATIENT
  Age: 81 Year

DRUGS (4)
  1. HYDROCHLOROTHIAZIDE\LOSARTAN [Suspect]
     Active Substance: HYDROCHLOROTHIAZIDE\LOSARTAN
     Indication: Product used for unknown indication
     Dosage: 50 MILLIGRAM, ONE IN THE MORNING AND A HALF OF ONE IN THE EVENING
     Route: 065
  2. ALPRAZOLAM [Suspect]
     Active Substance: ALPRAZOLAM
     Indication: Sleep disorder
     Dosage: 0.5 MILLIGRAM
     Route: 065
  3. ALPRAZOLAM [Suspect]
     Active Substance: ALPRAZOLAM
     Indication: Melatonin deficiency
  4. XYOSTED [Suspect]
     Active Substance: TESTOSTERONE ENANTHATE
     Indication: Blood testosterone decreased
     Route: 065

REACTIONS (8)
  - Ear disorder [Unknown]
  - Hot flush [Unknown]
  - Hyperhidrosis [Unknown]
  - Dyspnoea [Unknown]
  - Flushing [Unknown]
  - Hypertension [Unknown]
  - Wrong technique in product usage process [Unknown]
  - High density lipoprotein decreased [Unknown]
